FAERS Safety Report 8813661 (Version 5)
Quarter: 2012Q4

REPORT INFORMATION
  Report Type: Report from Study
  Country: JP (occurrence: JP)
  Receive Date: 20120927
  Receipt Date: 20121228
  Transmission Date: 20130627
  Serious: Yes (Death, Life-Threatening, Hospitalization, Other)
  Sender: FDA-Public Use
  Company Number: JP-PFIZER INC-2012235175

PATIENT
  Age: 75 Year
  Sex: Female
  Weight: 52 kg

DRUGS (12)
  1. REVATIO [Suspect]
     Indication: PULMONARY ARTERIAL HYPERTENSION
     Dosage: 20 mg, 2x/day
     Route: 048
     Dates: start: 20090820, end: 20090901
  2. REVATIO [Suspect]
     Dosage: 20 mg, 3x/day
     Route: 048
     Dates: start: 20090902, end: 20111011
  3. REVATIO [Suspect]
     Dosage: 20 mg, 3x/day
     Route: 048
     Dates: start: 20120322
  4. WARFARIN [Suspect]
     Indication: THROMBOSIS PROPHYLAXIS
     Dosage: 3 mg, 1x/day
     Route: 048
     Dates: start: 20090501, end: 201209
  5. TRACLEER [Suspect]
     Indication: PULMONARY HYPERTENSION
     Dosage: 250 mg, 2x/day
     Route: 048
     Dates: start: 20090625, end: 201209
  6. ZYLORIC [Suspect]
     Dosage: UNK
     Route: 048
  7. ZANTAC [Suspect]
     Dosage: UNK
     Route: 048
     Dates: end: 20111009
  8. LASIX [Concomitant]
     Dosage: UNK
     Route: 048
  9. NORVASC [Concomitant]
     Dosage: UNK
     Route: 048
  10. LIPITOR [Concomitant]
     Dosage: UNK
     Route: 048
     Dates: end: 20111009
  11. URSO [Concomitant]
     Dosage: UNK
     Route: 048
  12. MUCOSTA [Concomitant]
     Dosage: UNK
     Route: 048
     Dates: start: 20111010

REACTIONS (4)
  - Cerebral haemorrhage [Fatal]
  - Subdural haematoma [Fatal]
  - Respiratory failure [Recovering/Resolving]
  - Anaemia [Recovering/Resolving]
